FAERS Safety Report 23799559 (Version 1)
Quarter: 2024Q2

REPORT INFORMATION
  Report Type: Report from Study
  Country: CA (occurrence: CA)
  Receive Date: 20240430
  Receipt Date: 20240430
  Transmission Date: 20240716
  Serious: Yes (Other)
  Sender: FDA-Public Use
  Company Number: CA-LEO Pharma-369945

PATIENT
  Age: 44 Year
  Sex: Male

DRUGS (7)
  1. ADBRY [Suspect]
     Active Substance: TRALOKINUMAB-LDRM
     Indication: Dermatitis atopic
     Dosage: MAINTENANCE DOSE.?DOSAGE FORM AND STRENGTH: 150 MG/ML PRE-FILLED SYRINGE
     Route: 058
     Dates: end: 202401
  2. ADBRY [Suspect]
     Active Substance: TRALOKINUMAB-LDRM
     Indication: Dermatitis atopic
     Dosage: LOADING DOSE. DOSAGE FORM AND STRENGTH: 150 MG/ML PRE-FILLED SYRINGE
     Route: 058
     Dates: start: 20230704
  3. EZETIMIBE PLAQ [Concomitant]
     Indication: Hypercholesterolaemia
     Dosage: 1 TABLET ONCE DAILY AT THE SAME TIME OF DAY
  4. PANTOPRAZOLE (RIVA) [Concomitant]
     Indication: Product used for unknown indication
     Dosage: 1 TABLET ONCE DAILY 30 MIN BEFORE BREAKFAST
  5. TOPICORT [Concomitant]
     Active Substance: DESOXIMETASONE
     Indication: Product used for unknown indication
     Dosage: 1 APPLICATION ON TRUNK AND ARMS TWICE DAILY FOR 10 DAYS
     Route: 003
  6. PDP DESONIDE [Concomitant]
     Indication: Product used for unknown indication
     Dosage: LOCAL APPLICATION ON LESIONS TWICE DAILY FOR 10 DAYS
     Route: 003
  7. SYMBICORT TURB [Concomitant]
     Indication: Product used for unknown indication
     Dosage: 1 INHALATION TWICE DAILY MORNING AND EVENING

REACTIONS (3)
  - Immune system disorder [Unknown]
  - Acne [Not Recovered/Not Resolved]
  - Lichen planus [Not Recovered/Not Resolved]

NARRATIVE: CASE EVENT DATE: 20240101
